FAERS Safety Report 8978307 (Version 1)
Quarter: 2012Q4

REPORT INFORMATION
  Report Type: Spontaneous
  Country: US (occurrence: None)
  Receive Date: 20121218
  Receipt Date: 20121218
  Transmission Date: 20130627
  Serious: Yes (Other)
  Sender: FDA-Public Use
  Company Number: None

PATIENT
  Age: 83 Year
  Sex: Male
  Weight: 72.58 kg

DRUGS (1)
  1. LISTERINE ULTRACLEAN ANTISEPTIC ARTIC MINT [Suspect]
     Dosage: 1 oz diluted 1 time mouth

REACTIONS (5)
  - Dizziness [None]
  - Asthenia [None]
  - Glossitis [None]
  - Vision blurred [None]
  - Sluggishness [None]
